FAERS Safety Report 8843806 (Version 1)
Quarter: 2012Q4

REPORT INFORMATION
  Report Type: 
  Country: US (occurrence: US)
  Receive Date: 20121016
  Receipt Date: 20121016
  Transmission Date: 20130627
  Serious: Yes (Other)
  Sender: FDA-Public Use
  Company Number: US-BAYER-2012-104790

PATIENT
  Age: 76 Year
  Sex: Female
  Weight: 102.4 kg

DRUGS (2)
  1. BAYER ASPIRIN REGIMEN ADULT LOW STRENGTH [Suspect]
     Dosage: 1 DF, before meals
     Route: 048
     Dates: end: 20120925
  2. ANTIHYPERTENSIVES [Concomitant]

REACTIONS (3)
  - Deafness unilateral [Not Recovered/Not Resolved]
  - Tinnitus [Not Recovered/Not Resolved]
  - Contusion [Recovered/Resolved]
